FAERS Safety Report 4550514-9 (Version None)
Quarter: 2004Q4

REPORT INFORMATION
  Report Type: 
  Country: None (occurrence: None)
  Receive Date: 20041227
  Receipt Date: 20041115
  Transmission Date: 20050328
  Serious: No
  Sender: FDA-Public Use
  Company Number: 04P-163-0280631-00

PATIENT
  Sex: Female

DRUGS (3)
  1. HUMIRA [Suspect]
     Dosage: 40 MG, 1 IN 2 WK, SUBCUTANEOUS; SEE IMAGE
     Route: 058
     Dates: start: 20030101, end: 20041001
  2. HUMIRA [Suspect]
     Dosage: 40 MG, 1 IN 2 WK, SUBCUTANEOUS; SEE IMAGE
     Route: 058
     Dates: start: 20041001
  3. PREDNISONE [Concomitant]

REACTIONS (2)
  - DISCOMFORT [None]
  - INJECTION SITE BURNING [None]
